FAERS Safety Report 8069758-7 (Version None)
Quarter: 2012Q1

REPORT INFORMATION
  Report Type: 
  Country: None (occurrence: None)
  Receive Date: 20120125
  Receipt Date: 20120118
  Transmission Date: 20120608
  Serious: No
  Sender: FDA-Public Use
  Company Number: US-PFIZER INC-2011314085

PATIENT
  Sex: Female
  Weight: 24 kg

DRUGS (5)
  1. ACETAMINOPHEN [Concomitant]
     Indication: HEADACHE
     Dosage: UNK, AS NEEDED
  2. LUPRON [Concomitant]
     Indication: MENSTRUAL CYCLE MANAGEMENT
     Dosage: UNK
     Dates: start: 20111201
  3. ZANTAC [Concomitant]
     Indication: GASTROOESOPHAGEAL REFLUX DISEASE
     Dosage: UNK
  4. IBUPROFEN [Concomitant]
     Indication: HEADACHE
     Dosage: UNK, AS NEEDED
  5. GENOTROPIN [Suspect]
     Indication: GROWTH HORMONE DEFICIENCY
     Dosage: 0.5 MG, DAILY
     Route: 030
     Dates: start: 20111207, end: 20120104

REACTIONS (4)
  - EMOTIONAL DISORDER [None]
  - INCORRECT ROUTE OF DRUG ADMINISTRATION [None]
  - MOOD ALTERED [None]
  - HEADACHE [None]
